FAERS Safety Report 24625967 (Version 2)
Quarter: 2025Q3

REPORT INFORMATION
  Report Type: Spontaneous
  Country: US (occurrence: US)
  Receive Date: 20241115
  Receipt Date: 20250808
  Transmission Date: 20251020
  Serious: Yes (Other)
  Sender: ANI
  Company Number: US-ANIPHARMA-2024-US-040501

PATIENT
  Age: 63 Year
  Sex: Female

DRUGS (21)
  1. CORTICOTROPIN [Suspect]
     Active Substance: CORTICOTROPIN
     Indication: Polymyositis
     Route: 058
     Dates: start: 20240706, end: 20250418
  2. HEPARIN [Concomitant]
     Active Substance: HEPARIN SODIUM
  3. IBUPROFEN [Concomitant]
     Active Substance: IBUPROFEN
  4. Irbesartan/ HCTZ [Concomitant]
  5. KETOROLAC [Concomitant]
     Active Substance: KETOROLAC TROMETHAMINE
  6. Krill Oil Omega 3 [Concomitant]
  7. Loratadine-D 24 hour [Concomitant]
  8. OCTAGAM IMMUNE GLOBULIN (HUMAN) [Concomitant]
     Active Substance: HUMAN IMMUNOGLOBULIN G
  9. PREDNISONE [Suspect]
     Active Substance: PREDNISONE
  10. ARMOUR THYROID [Concomitant]
     Active Substance: THYROID, PORCINE
  11. ACETAMINOPHEN [Concomitant]
     Active Substance: ACETAMINOPHEN
  12. VITAMIN C [Concomitant]
     Active Substance: ASCORBIC ACID
  13. Digestive Health Probiotic [Concomitant]
  14. OZEMPIC [Concomitant]
     Active Substance: SEMAGLUTIDE
  15. ALPRAZOLAM [Concomitant]
     Active Substance: ALPRAZOLAM
  16. CLONIDINE [Concomitant]
     Active Substance: CLONIDINE
  17. CYANOCOBALAMIN [Concomitant]
     Active Substance: CYANOCOBALAMIN
  18. DIPHENHYDRAMINE [Concomitant]
     Active Substance: DIPHENHYDRAMINE
  19. FUROSEMIDE [Concomitant]
     Active Substance: FUROSEMIDE
  20. GLUTATHIONE [Concomitant]
     Active Substance: GLUTATHIONE
  21. GRALISE [Concomitant]
     Active Substance: GABAPENTIN

REACTIONS (12)
  - Contraindicated product administered [Recovered/Resolved]
  - Myopathy [Not Recovered/Not Resolved]
  - Cushingoid [Not Recovered/Not Resolved]
  - Product use in unapproved indication [Recovered/Resolved]
  - Electrolyte imbalance [Recovering/Resolving]
  - Blood pressure increased [Unknown]
  - Fluid retention [Unknown]
  - Swelling face [Recovered/Resolved]
  - Peripheral swelling [Unknown]
  - Weight increased [Not Recovered/Not Resolved]
  - Fatigue [Unknown]
  - Muscular weakness [Not Recovered/Not Resolved]

NARRATIVE: CASE EVENT DATE: 20240606
